FAERS Safety Report 10128782 (Version 1)
Quarter: 2014Q2

REPORT INFORMATION
  Report Type: Spontaneous
  Country: US (occurrence: None)
  Receive Date: 20140424
  Receipt Date: 20140424
  Transmission Date: 20141212
  Serious: Yes (Hospitalization)
  Sender: FDA-Public Use
  Company Number: None

PATIENT
  Age: 64 Year
  Sex: Male
  Weight: 77 kg

DRUGS (9)
  1. PHENYTOIN [Suspect]
     Indication: CONVULSION
     Route: 048
  2. NITROGLYCERIN [Concomitant]
  3. LEVETIRACETAM [Concomitant]
  4. RIVAROXABAN [Concomitant]
  5. MORPHINE [Concomitant]
  6. TIZANIDINE [Concomitant]
  7. DULOXETINE [Concomitant]
  8. OXYCODONE [Concomitant]
  9. PHENYTOIN [Concomitant]

REACTIONS (4)
  - Aggression [None]
  - Choking [None]
  - Slow response to stimuli [None]
  - Anticonvulsant drug level increased [None]
